FAERS Safety Report 24629893 (Version 1)
Quarter: 2024Q4

REPORT INFORMATION
  Report Type: Spontaneous
  Country: US (occurrence: US)
  Receive Date: 20241118
  Receipt Date: 20241118
  Transmission Date: 20250115
  Serious: Yes (Death, Other)
  Sender: AMGEN
  Company Number: US-AMGEN-USASP2024221468

PATIENT

DRUGS (2)
  1. PREDNISONE [Suspect]
     Active Substance: PREDNISONE
     Indication: Pneumonitis
     Dosage: UNK
     Route: 065
  2. UNSPECIFIED INGREDIENT [Concomitant]
     Active Substance: UNSPECIFIED INGREDIENT
     Indication: Non-small cell lung cancer
     Dosage: UNK
     Route: 065

REACTIONS (8)
  - Pneumonitis [Fatal]
  - Interstitial lung abnormality [Unknown]
  - Diabetes mellitus [Unknown]
  - Fracture [Unknown]
  - Drug resistance [Unknown]
  - Therapy non-responder [Unknown]
  - Therapy partial responder [Unknown]
  - Myopathy [Unknown]
